FAERS Safety Report 9417946 (Version 2)
Quarter: 2013Q4

REPORT INFORMATION
  Report Type: Spontaneous
  Country: GB (occurrence: GB)
  Receive Date: 20130724
  Receipt Date: 20131030
  Transmission Date: 20140711
  Serious: Yes (Hospitalization, Other)
  Sender: FDA-Public Use
  Company Number: GB-ASTRAZENECA-2013SE52737

PATIENT
  Age: 75 Year
  Sex: Male
  Weight: 65 kg

DRUGS (3)
  1. CRESTOR [Suspect]
     Route: 048
     Dates: start: 201006, end: 20130613
  2. COVERSYL [Concomitant]
  3. INDAPAMIDE [Concomitant]

REACTIONS (6)
  - Hiccups [Recovered/Resolved]
  - Pancreatic calcification [Unknown]
  - Pancreatic cyst [Unknown]
  - Pancreatic disorder [Unknown]
  - Vomiting [Recovered/Resolved]
  - Abdominal pain upper [Recovered/Resolved]
